FAERS Safety Report 5193118-X (Version None)
Quarter: 2006Q4

REPORT INFORMATION
  Report Type: 
  Country: None (occurrence: None)
  Receive Date: 20061228
  Receipt Date: 20060510
  Transmission Date: 20070319
  Serious: No
  Sender: FDA-Public Use
  Company Number: US-GLAXOSMITHKLINE-A0605085A

PATIENT
  Age: 82 Year
  Sex: Male

DRUGS (4)
  1. AVODART [Suspect]
     Indication: BENIGN PROSTATIC HYPERPLASIA
     Dosage: 1CAP SINGLE DOSE
     Route: 048
  2. TERAZOSIN HCL [Concomitant]
  3. SINGULAIR [Concomitant]
  4. SEREVENT [Concomitant]

REACTIONS (1)
  - URINARY RETENTION [None]
